FAERS Safety Report 23653132 (Version 3)
Quarter: 2024Q3

REPORT INFORMATION
  Report Type: Spontaneous
  Country: ES (occurrence: ES)
  Receive Date: 20240320
  Receipt Date: 20240821
  Transmission Date: 20241016
  Serious: Yes (Hospitalization, Other)
  Sender: SANDOZ
  Company Number: ES-GILEAD-2024-0665277

PATIENT
  Age: 10 Year
  Sex: Female
  Weight: 23.7 kg

DRUGS (13)
  1. BREXUCABTAGENE AUTOLEUCEL [Suspect]
     Active Substance: BREXUCABTAGENE AUTOLEUCEL
     Indication: Non-Hodgkin^s lymphoma
     Dosage: 40 ML
     Route: 042
     Dates: start: 20240304, end: 20240304
  2. BREXUCABTAGENE AUTOLEUCEL [Suspect]
     Active Substance: BREXUCABTAGENE AUTOLEUCEL
     Indication: Acute lymphocytic leukaemia
  3. CYCLOPHOSPHAMIDE [Suspect]
     Active Substance: CYCLOPHOSPHAMIDE
     Indication: Bone marrow conditioning regimen
     Dosage: 800 MG
     Route: 042
     Dates: start: 20220528, end: 20220528
  4. FLUDARABINE [Suspect]
     Active Substance: FLUDARABINE PHOSPHATE
     Indication: Bone marrow conditioning regimen
     Dosage: 22.5 MG
     Route: 042
     Dates: start: 20220526, end: 20220528
  5. ACYCLOVIR [Concomitant]
     Active Substance: ACYCLOVIR
     Indication: Product used for unknown indication
     Dosage: UNK
     Route: 065
     Dates: start: 20240209
  6. ANAKINRA [Concomitant]
     Active Substance: ANAKINRA
     Dosage: 2 MG/KG
     Route: 065
     Dates: start: 20240304
  7. ANAKINRA [Concomitant]
     Active Substance: ANAKINRA
     Dosage: INCREASED TO 8 MG/KG, QD
     Route: 065
     Dates: start: 20240312
  8. ANAKINRA [Concomitant]
     Active Substance: ANAKINRA
     Indication: Product used for unknown indication
     Dosage: UNK
     Route: 065
     Dates: start: 20240304
  9. ANAKINRA [Concomitant]
     Active Substance: ANAKINRA
     Indication: Prophylaxis
     Dosage: UNK
     Route: 065
     Dates: start: 20240304
  10. ANAKINRA [Concomitant]
     Active Substance: ANAKINRA
     Dosage: GRADUALLY REDUCED
     Route: 065
     Dates: start: 20240315
  11. COTRIMOXAZOLE [Concomitant]
     Active Substance: SULFAMETHOXAZOLE\TRIMETHOPRIM
     Indication: Product used for unknown indication
     Dosage: UNK
     Route: 065
     Dates: start: 20240130
  12. LEVETIRACETAM [Concomitant]
     Active Substance: LEVETIRACETAM
     Indication: Product used for unknown indication
     Dosage: UNK
     Route: 065
     Dates: start: 20240304
  13. VORICONAZOLE [Concomitant]
     Active Substance: VORICONAZOLE
     Indication: Product used for unknown indication
     Dosage: UNK
     Route: 065
     Dates: start: 20240206

REACTIONS (2)
  - Haemophagocytic lymphohistiocytosis [Recovered/Resolved]
  - Cytokine release syndrome [Recovered/Resolved]

NARRATIVE: CASE EVENT DATE: 20240308
